FAERS Safety Report 5525881-X (Version None)
Quarter: 2007Q4

REPORT INFORMATION
  Report Type: 
  Country: None (occurrence: None)
  Receive Date: 20071126
  Receipt Date: 20071120
  Transmission Date: 20080405
  Serious: Yes (Death)
  Sender: FDA-Public Use
  Company Number: JP-ASTRAZENECA-2007SE06235

PATIENT
  Age: 69 Year
  Sex: Female

DRUGS (4)
  1. BLOPRESS [Suspect]
     Indication: HYPERTENSION
     Route: 048
     Dates: start: 20060925, end: 20070228
  2. CALCIUM CHANNEL BLOCKERS [Concomitant]
     Indication: HYPERTENSION
     Route: 065
  3. ORAL ANTIDIABETICS [Concomitant]
     Indication: DIABETES MELLITUS
     Route: 048
  4. SULFONAMIDES, UREA DERIVATIVES [Concomitant]
     Indication: DIABETES MELLITUS
     Route: 048

REACTIONS (1)
  - SUDDEN DEATH [None]
